FAERS Safety Report 14659810 (Version 1)
Quarter: 2018Q1

REPORT INFORMATION
  Report Type: Spontaneous
  Country: US (occurrence: US)
  Receive Date: 20180320
  Receipt Date: 20180320
  Transmission Date: 20180509
  Serious: Yes (Hospitalization)
  Sender: FDA-Public Use
  Company Number: US-SA-2018SA077069

PATIENT
  Age: 55 Year
  Sex: Female

DRUGS (9)
  1. METOPROLOL. [Concomitant]
     Active Substance: METOPROLOL
  2. CHOLESTYRAMINE. [Concomitant]
     Active Substance: CHOLESTYRAMINE
     Route: 065
  3. SUMATRIPTAN. [Concomitant]
     Active Substance: SUMATRIPTAN
  4. WARFARIN [Concomitant]
     Active Substance: WARFARIN
  5. TIZANIDINE. [Concomitant]
     Active Substance: TIZANIDINE
  6. ACEBUTOLOL [Concomitant]
     Active Substance: ACEBUTOLOL
  7. LISINOPRIL. [Concomitant]
     Active Substance: LISINOPRIL
  8. IBUPROFEN. [Concomitant]
     Active Substance: IBUPROFEN
  9. AUBAGIO [Suspect]
     Active Substance: TERIFLUNOMIDE
     Indication: MULTIPLE SCLEROSIS
     Route: 048
     Dates: start: 2014

REACTIONS (6)
  - Cardiomyopathy [Unknown]
  - Ejection fraction decreased [Unknown]
  - Abdominal pain [Unknown]
  - Hepatic enzyme increased [Not Recovered/Not Resolved]
  - Thrombosis [Unknown]
  - Nausea [Unknown]

NARRATIVE: CASE EVENT DATE: 201801
